FAERS Safety Report 4683159-0 (Version None)
Quarter: 2005Q2

REPORT INFORMATION
  Report Type: 
  Country: None (occurrence: None)
  Receive Date: 20050602
  Receipt Date: 20050405
  Transmission Date: 20051028
  Serious: No
  Sender: FDA-Public Use
  Company Number: USA050392648

PATIENT
  Sex: Female
  Weight: 79 kg

DRUGS (2)
  1. CYMBALTA [Suspect]
     Indication: DEPRESSION
     Dosage: 60 MG
     Dates: start: 20050120, end: 20050121
  2. WELLBUTRIN [Concomitant]

REACTIONS (10)
  - ANXIETY [None]
  - DYSPNOEA [None]
  - ELECTROCARDIOGRAM ABNORMAL [None]
  - FEELING ABNORMAL [None]
  - HEARING IMPAIRED [None]
  - HYPOAESTHESIA [None]
  - PALPITATIONS [None]
  - TACHYCARDIA [None]
  - TUNNEL VISION [None]
  - VISUAL DISTURBANCE [None]
